FAERS Safety Report 4509835-8 (Version None)
Quarter: 2004Q4

REPORT INFORMATION
  Report Type: 
  Country: None (occurrence: None)
  Receive Date: 20041124
  Receipt Date: 20041029
  Transmission Date: 20050328
  Serious: Yes (Hospitalization, Other)
  Sender: FDA-Public Use
  Company Number: PHNU2004DE03696

PATIENT
  Age: 66 Year
  Sex: Male
  Weight: 70 kg

DRUGS (14)
  1. MYFORTIC [Suspect]
     Indication: RENAL TRANSPLANT
     Dosage: 720 MG, BID
     Dates: start: 20041018, end: 20041026
  2. SANDIMMUNE [Suspect]
     Indication: RENAL TRANSPLANT
     Dosage: 80 MG, BID
  3. CIPROBAY [Suspect]
     Dosage: UNK, UNK
     Dates: start: 20041019, end: 20041026
  4. METOPROLOL SUCCINATE [Concomitant]
     Dosage: 1 DF, BID
  5. LASIX [Concomitant]
     Dosage: 20 MG, BID
  6. COVERSUM COR [Concomitant]
     Dosage: 2 MG, QD
  7. CYNT ^BEIERSDORF^ [Concomitant]
     Dosage: .2 MG, BID
  8. NORVASC [Concomitant]
     Dosage: 5 MG, QD
  9. ACIMETHIN [Concomitant]
     Dosage: 500 MG, BID
  10. NEPHROTRANS [Concomitant]
     Dosage: 1 DF, TID
  11. SORTIS ^GOEDECKE^ [Concomitant]
     Dosage: 10 MG, QD
  12. ACETYLSALICYLIC ACID [Concomitant]
     Dosage: 100 MG, QD
  13. BONDIOL [Concomitant]
     Dosage: .25 MG, QD
  14. SODIUM POLYSTYRENE SULFONATE [Concomitant]
     Dosage: 15 G, PRN

REACTIONS (11)
  - BLOOD CREATININE INCREASED [None]
  - COMPLICATIONS OF TRANSPLANTED KIDNEY [None]
  - DRUG LEVEL DECREASED [None]
  - OVERGROWTH BACTERIAL [None]
  - PROCEDURAL COMPLICATION [None]
  - PRURITUS [None]
  - RASH GENERALISED [None]
  - RENAL INJURY [None]
  - SECONDARY IMMUNODEFICIENCY [None]
  - URETHRAL PAIN [None]
  - URINARY TRACT INFECTION [None]
